FAERS Safety Report 25366959 (Version 2)
Quarter: 2025Q2

REPORT INFORMATION
  Report Type: Spontaneous
  Country: US (occurrence: US)
  Receive Date: 20250528
  Receipt Date: 20250605
  Transmission Date: 20250716
  Serious: Yes (Hospitalization)
  Sender: ROCHE
  Company Number: US-ROCHE-10000288689

PATIENT
  Age: 70 Year
  Sex: Female
  Weight: 72.57 kg

DRUGS (8)
  1. XOLAIR [Suspect]
     Active Substance: OMALIZUMAB
     Indication: Asthma
     Dosage: ANOTHER DOSE RECEIVED ON 18-MAY-2025.
     Route: 058
     Dates: start: 201912
  2. LEVOTHYROXINE [Concomitant]
     Active Substance: LEVOTHYROXINE
     Indication: Hypothyroidism
     Route: 048
  3. GENTAMICIN [Concomitant]
     Active Substance: GENTAMICIN
     Indication: Sinusitis
     Dosage: SINUS IRRIGATION
     Route: 045
  4. ADVAIR HFA [Concomitant]
     Active Substance: FLUTICASONE PROPIONATE\SALMETEROL XINAFOATE
     Indication: Asthma
     Dosage: ONE PUFF IN MORNING, 1 PUFF AT NIGHT, 230MCG/21MCG
     Route: 055
  5. MONTELUKAST [Concomitant]
     Active Substance: MONTELUKAST
     Indication: Asthma
     Route: 048
  6. LEVOCETIRIZINE [Concomitant]
     Active Substance: LEVOCETIRIZINE
     Indication: Hypersensitivity
     Route: 048
  7. AMOXICILLIN [Concomitant]
     Active Substance: AMOXICILLIN
  8. BUDESONIDE [Concomitant]
     Active Substance: BUDESONIDE
     Indication: Sinusitis
     Dosage: SINUS IRRIGATION
     Route: 045

REACTIONS (9)
  - Device malfunction [Unknown]
  - Device defective [Unknown]
  - Product dose omission issue [Unknown]
  - Sternal fracture [Recovered/Resolved]
  - Accident at home [Unknown]
  - Laryngitis [Recovering/Resolving]
  - Bronchitis [Recovered/Resolved]
  - Hypersensitivity [Recovered/Resolved]
  - Product closure removal difficult [Unknown]

NARRATIVE: CASE EVENT DATE: 20240101
